FAERS Safety Report 22055122 (Version 1)
Quarter: 2023Q1

REPORT INFORMATION
  Report Type: Other
  Country: CA (occurrence: CA)
  Receive Date: 20230302
  Receipt Date: 20230302
  Transmission Date: 20230417
  Serious: Yes (Other)
  Sender: FDA-Public Use
  Company Number: CA-APOTEX-2023AP004317

PATIENT
  Sex: Female

DRUGS (1)
  1. FINGOLIMOD HYDROCHLORIDE [Suspect]
     Active Substance: FINGOLIMOD HYDROCHLORIDE
     Indication: Neutropenia
     Dosage: 0.5 MILLIGRAM, QD
     Route: 048
     Dates: start: 20200106, end: 202203

REACTIONS (2)
  - Skin cancer [Unknown]
  - Immune system disorder [Unknown]
